FAERS Safety Report 6418797-8 (Version None)
Quarter: 2009Q4

REPORT INFORMATION
  Report Type: 
  Country: None (occurrence: None)
  Receive Date: 20091026
  Receipt Date: 20091013
  Transmission Date: 20100525
  Serious: Yes (Death, Other)
  Sender: FDA-Public Use
  Company Number: GXKR2009US11468

PATIENT
  Age: 53 Year
  Sex: Female

DRUGS (5)
  1. AZATHIOPRINE [Suspect]
     Indication: IMMUNOSUPPRESSION
  2. PREDNISONE [Suspect]
     Indication: IMMUNOSUPPRESSION
  3. PREDNISOLONE [Suspect]
     Indication: IMMUNOSUPPRESSION
     Dosage: LOW DOSE
  4. TACROLIMUS [Suspect]
     Indication: IMMUNOSUPPRESSION
  5. MELPHALAN HYDROCHLORIDE [Suspect]
     Indication: METASTATIC MALIGNANT MELANOMA

REACTIONS (3)
  - IMMUNOSUPPRESSANT DRUG LEVEL DECREASED [None]
  - LIVER TRANSPLANT REJECTION [None]
  - METASTATIC MALIGNANT MELANOMA [None]
